FAERS Safety Report 4456800-5 (Version None)
Quarter: 2004Q3

REPORT INFORMATION
  Report Type: 
  Country: None (occurrence: None)
  Receive Date: 20040923
  Receipt Date: 20040914
  Transmission Date: 20050211
  Serious: Yes (Other)
  Sender: FDA-Public Use
  Company Number: GB-BRISTOL-MYERS SQUIBB COMPANY-12700878

PATIENT
  Age: 40 Year
  Sex: Male

DRUGS (2)
  1. IRBESARTAN [Suspect]
     Route: 048
  2. FOSINOPRIL SODIUM [Concomitant]
     Route: 048

REACTIONS (1)
  - MYOSITIS [None]
